FAERS Safety Report 9839899 (Version 3)
Quarter: 2014Q1

REPORT INFORMATION
  Report Type: Spontaneous
  Country: DE (occurrence: DE)
  Receive Date: 20140124
  Receipt Date: 20140204
  Transmission Date: 20141002
  Serious: Yes (Life-Threatening, Other)
  Sender: FDA-Public Use
  Company Number: DE-ROCHE-1333353

PATIENT
  Age: 75 Year
  Sex: Female
  Weight: 46 kg

DRUGS (8)
  1. PERJETA [Suspect]
     Indication: BREAST CANCER METASTATIC
     Route: 042
     Dates: start: 20131105
  2. HERCEPTIN [Suspect]
     Indication: BREAST CANCER METASTATIC
     Route: 042
     Dates: start: 20131105
  3. PACLITAXEL [Suspect]
     Indication: BREAST CANCER METASTATIC
     Route: 042
     Dates: start: 20131105, end: 20140107
  4. DEXAMETHASONE [Concomitant]
     Indication: PREMEDICATION
     Route: 042
     Dates: start: 20131105, end: 20140107
  5. CLEMASTIN [Concomitant]
     Indication: PREMEDICATION
     Route: 042
     Dates: start: 20131105, end: 20140107
  6. ONDANSETRON [Concomitant]
     Indication: PREMEDICATION
     Route: 042
     Dates: start: 20131105, end: 20140107
  7. DECORTIN H [Concomitant]
     Indication: PREMEDICATION
     Route: 048
     Dates: start: 20140128
  8. ISCADOR [Concomitant]
     Indication: BREAST CANCER METASTATIC
     Route: 058
     Dates: start: 20131119

REACTIONS (3)
  - Interstitial lung disease [Recovering/Resolving]
  - Dyspnoea [Recovering/Resolving]
  - Pulmonary fibrosis [Not Recovered/Not Resolved]
